FAERS Safety Report 21485449 (Version 1)
Quarter: 2022Q4

REPORT INFORMATION
  Report Type: Spontaneous
  Country: US (occurrence: US)
  Receive Date: 20221020
  Receipt Date: 20221020
  Transmission Date: 20230112
  Serious: No
  Sender: FDA-Public Use
  Company Number: US-PFIZER INC-PV202200084537

PATIENT
  Age: 32 Year
  Sex: Male

DRUGS (3)
  1. CIBINQO [Suspect]
     Active Substance: ABROCITINIB
     Indication: Lichenification
     Dosage: 100 MG
     Route: 048
  2. CIBINQO [Suspect]
     Active Substance: ABROCITINIB
     Indication: Erythema
  3. CIBINQO [Suspect]
     Active Substance: ABROCITINIB
     Indication: Eczema

REACTIONS (2)
  - Urticaria [Unknown]
  - Off label use [Unknown]
